FAERS Safety Report 24697560 (Version 1)
Quarter: 2024Q4

REPORT INFORMATION
  Report Type: Spontaneous
  Country: CH (occurrence: CH)
  Receive Date: 20241204
  Receipt Date: 20241204
  Transmission Date: 20250115
  Serious: Yes (Other)
  Sender: TEVA
  Company Number: None

PATIENT
  Age: 70 Year
  Sex: Male
  Weight: 80 kg

DRUGS (4)
  1. DICLOFENAC [Suspect]
     Active Substance: DICLOFENAC
     Indication: Pain in extremity
     Dosage: OLFEN DUO RELEASE MEPHA
     Route: 048
     Dates: start: 20241104, end: 20241106
  2. PROSTAPLANT F [Concomitant]
     Indication: Benign prostatic hyperplasia
     Route: 048
     Dates: start: 20230103
  3. FLUTIFORM [Concomitant]
     Active Substance: FLUTIFORM
     Indication: Asthma
     Route: 055
     Dates: start: 20220702
  4. FLUTICASONE FUROATE [Concomitant]
     Active Substance: FLUTICASONE FUROATE
     Indication: Rhinitis
     Route: 045
     Dates: start: 20210517

REACTIONS (1)
  - Bradycardia [Recovered/Resolved]

NARRATIVE: CASE EVENT DATE: 20241105
